FAERS Safety Report 12320198 (Version 2)
Quarter: 2016Q2

REPORT INFORMATION
  Report Type: Report from Study
  Country: CN (occurrence: CN)
  Receive Date: 20160430
  Receipt Date: 20160620
  Transmission Date: 20160815
  Serious: Yes (Hospitalization)
  Sender: FDA-Public Use
  Company Number: CN-ASTRAZENECA-2016SE23849

PATIENT
  Sex: Female

DRUGS (5)
  1. BYETTA [Suspect]
     Active Substance: EXENATIDE
     Indication: DIABETES MELLITUS
     Route: 058
     Dates: start: 201511, end: 201602
  2. INSULIN [Concomitant]
     Active Substance: INSULIN NOS
  3. BYETTA [Suspect]
     Active Substance: EXENATIDE
     Indication: DIABETES MELLITUS
     Route: 058
     Dates: start: 201510, end: 201511
  4. DRUGS FOR DIABETES [Concomitant]
     Indication: DIABETES MELLITUS
  5. HYPERTENSION DRUGS [Concomitant]
     Indication: HYPERTENSION

REACTIONS (3)
  - Bone formation increased [Not Recovered/Not Resolved]
  - Dysuria [Not Recovered/Not Resolved]
  - Dyschezia [Not Recovered/Not Resolved]
